FAERS Safety Report 15951148 (Version 1)
Quarter: 2019Q1

REPORT INFORMATION
  Report Type: Spontaneous
  Country: AU (occurrence: AU)
  Receive Date: 20190211
  Receipt Date: 20190211
  Transmission Date: 20190417
  Serious: Yes (Hospitalization, Other)
  Sender: FDA-Public Use
  Company Number: AU-PFIZER INC-2019056343

PATIENT
  Age: 8 Month
  Sex: Male
  Weight: 7.5 kg

DRUGS (8)
  1. VITAMIN D3 [Concomitant]
     Active Substance: CHOLECALCIFEROL
     Dosage: 25000 IU, DAILY
  2. HYDROCORTISONE. [Concomitant]
     Active Substance: HYDROCORTISONE
     Indication: HYPERVITAMINOSIS D
  3. HYDROCORTISONE. [Concomitant]
     Active Substance: HYDROCORTISONE
     Indication: HYPERCALCAEMIA
     Dosage: UNK
     Route: 048
  4. VITAMIN D3 [Concomitant]
     Active Substance: CHOLECALCIFEROL
     Indication: BRONCHIOLITIS
     Dosage: 1000 IU, DAILY (25-HYDROXYVITAMIN D)
  5. GLUCOSE [Suspect]
     Active Substance: DEXTROSE
     Indication: HYPERCALCAEMIA
     Dosage: UNK, DAILY ((PLASMALYTE-148 + 5% GLUCOSE AT 150 ML/KG/DAY))
     Route: 042
  6. GLUCOSE [Suspect]
     Active Substance: DEXTROSE
     Indication: HYPERVITAMINOSIS D
  7. PLASMALYTE 148 [Suspect]
     Active Substance: ELECTROLYTES NOS
     Indication: HYPERVITAMINOSIS D
  8. PLASMALYTE 148 [Suspect]
     Active Substance: ELECTROLYTES NOS
     Indication: HYPERCALCAEMIA
     Dosage: UNK, DAILY (PLASMALYTE-148 + 5% GLUCOSE AT 150 ML/KG/DAY)
     Route: 042

REACTIONS (2)
  - Hypokalaemia [Recovering/Resolving]
  - Oedema peripheral [Recovering/Resolving]
